FAERS Safety Report 7477810-X (Version None)
Quarter: 2011Q2

REPORT INFORMATION
  Report Type: 
  Country: None (occurrence: None)
  Receive Date: 20110511
  Receipt Date: 20110511
  Transmission Date: 20111010
  Serious: Yes (Death)
  Sender: FDA-Public Use
  Company Number: None

PATIENT
  Age: 66 Year
  Sex: Male

DRUGS (7)
  1. REVLIMID [Suspect]
     Indication: MYELODYSPLASTIC SYNDROME
     Dosage: REVLIMID 10 MG DAILY ORALLY
     Route: 048
     Dates: start: 20100701
  2. GLIPIZIDE [Concomitant]
  3. ZETIA [Concomitant]
  4. PROCRIT [Concomitant]
  5. LIPITOR [Concomitant]
  6. COMBIVENT [Concomitant]
  7. FUROSEMIDE [Concomitant]

REACTIONS (3)
  - DISEASE RECURRENCE [None]
  - THROMBOCYTOPENIA [None]
  - MALIGNANT PLEURAL EFFUSION [None]
